FAERS Safety Report 25014411 (Version 1)
Quarter: 2025Q1

REPORT INFORMATION
  Report Type: Spontaneous
  Country: US (occurrence: US)
  Receive Date: 20250226
  Receipt Date: 20250226
  Transmission Date: 20250408
  Serious: Yes (Other)
  Sender: DR REDDYS
  Company Number: US-DRL-USA-USA/2025/02/002890

PATIENT
  Age: 3 Year
  Sex: Female

DRUGS (2)
  1. CYCLOPHOSPHAMIDE [Suspect]
     Active Substance: CYCLOPHOSPHAMIDE
     Indication: Neuroblastoma
  2. TOPOTECAN [Suspect]
     Active Substance: TOPOTECAN HYDROCHLORIDE
     Indication: Neuroblastoma

REACTIONS (4)
  - Mucosal inflammation [Recovering/Resolving]
  - Feeding intolerance [Recovering/Resolving]
  - Oesophageal stenosis [Recovering/Resolving]
  - Product use in unapproved indication [Unknown]
